FAERS Safety Report 8555563-1 (Version None)
Quarter: 2012Q3

REPORT INFORMATION
  Report Type: 
  Country: None (occurrence: None)
  Receive Date: 20120731
  Receipt Date: 20120424
  Transmission Date: 20120928
  Serious: Yes (Other)
  Sender: FDA-Public Use
  Company Number: US-ASTRAZENECA-2008UW25769

PATIENT
  Age: 59 Year
  Sex: Male
  Weight: 120.2 kg

DRUGS (19)
  1. AMBIEN [Concomitant]
     Dates: start: 19940101
  2. COREG [Concomitant]
     Indication: ATRIAL FIBRILLATION
     Dates: start: 19990101
  3. CHLOROHYDRATE [Concomitant]
  4. SEROQUEL [Suspect]
     Indication: MAJOR DEPRESSION
     Route: 048
  5. SEROQUEL [Suspect]
     Indication: ANXIETY
     Route: 048
  6. SEROQUEL [Suspect]
     Route: 048
  7. LORAZEPAM [Concomitant]
     Dosage: FREQUENCY: AS REQUIRED
     Dates: start: 19940101
  8. TYLENOL (CAPLET) [Concomitant]
     Indication: BACK DISORDER
     Dosage: AS REQUIRED
  9. FLEXERIL [Concomitant]
     Indication: BACK DISORDER
     Dosage: TWO TIMES A DAY
     Route: 065
  10. FLEXERIL [Concomitant]
     Indication: MUSCLE RELAXANT THERAPY
     Dosage: TWO TIMES A DAY
     Route: 065
  11. LASIX [Concomitant]
  12. ACETAMINOPHEN [Concomitant]
     Dosage: AS REQUIRED
  13. SEROQUEL [Suspect]
     Indication: SLEEP DISORDER
     Route: 048
  14. SEROQUEL [Suspect]
     Route: 048
  15. QUINOPRIL [Concomitant]
     Indication: HYPERTENSION
  16. MONOHYDRATE [Concomitant]
  17. SEROQUEL [Suspect]
     Route: 048
  18. CODEINE [Concomitant]
     Indication: MUSCLE RELAXANT THERAPY
  19. SYMVASTIN/ZOCOR [Concomitant]
     Indication: BLOOD CHOLESTEROL ABNORMAL

REACTIONS (15)
  - INSOMNIA [None]
  - THERAPEUTIC RESPONSE UNEXPECTED [None]
  - PAIN IN EXTREMITY [None]
  - SUICIDAL IDEATION [None]
  - DEPRESSION [None]
  - BACK PAIN [None]
  - INTENTIONAL DRUG MISUSE [None]
  - BLOOD PRESSURE INCREASED [None]
  - EMOTIONAL DISTRESS [None]
  - BLOOD GLUCOSE INCREASED [None]
  - NIGHTMARE [None]
  - WEIGHT INCREASED [None]
  - DRUG INEFFECTIVE FOR UNAPPROVED INDICATION [None]
  - MALAISE [None]
  - OFF LABEL USE [None]
